FAERS Safety Report 5335875-5 (Version None)
Quarter: 2007Q1

REPORT INFORMATION
  Report Type: 
  Country: None (occurrence: None)
  Receive Date: 20070228
  Receipt Date: 20060628
  Transmission Date: 20070707
  Serious: Yes (Hospitalization)
  Sender: FDA-Public Use
  Company Number: 06P-163-0337557-00

PATIENT
  Age: 71 Year
  Sex: Female
  Weight: 63.9 kg

DRUGS (27)
  1. VICODIN [Suspect]
     Indication: PAIN
     Dosage: AS REQUIRED, PER ORAL
     Route: 048
     Dates: start: 20040713
  2. HUMIRA PRE-FILLED SYRINGE (ADALIMUMAB) (ADALIMUMAB) (ADALIMUMAB) [Concomitant]
  3. QUININE SULFATE [Concomitant]
  4. ATORVASTATIN [Concomitant]
  5. IRON [Concomitant]
  6. TRAZODONE HCL [Concomitant]
  7. EPOGEN [Concomitant]
  8. METFORMIN HCL [Concomitant]
  9. LEVOTHYROXINE SODIUM [Concomitant]
  10. ESTROGENS CONJUGATED [Concomitant]
  11. LEXAPRO [Concomitant]
  12. ACTOS [Concomitant]
  13. GLIPIZIDE [Concomitant]
  14. DIGOXIN [Concomitant]
  15. LOSARTAN POTASSIUM [Concomitant]
  16. PREDNISONE TAB [Concomitant]
  17. METHOTREXATE SODIUM [Concomitant]
  18. LANSOPRAZOLE [Concomitant]
  19. BONIVA [Concomitant]
  20. ESOMEPRAZOLE MAGNESIUM [Concomitant]
  21. DIAZEPAM [Concomitant]
  22. METAXALONE [Concomitant]
  23. FLEXERIL [Concomitant]
  24. FOLIC ACID [Concomitant]
  25. MACROGOL [Concomitant]
  26. MAGNESIUM OXIDE [Concomitant]
  27. CEPHALEXIN MONOHYDRATE [Concomitant]

REACTIONS (3)
  - CONSTIPATION [None]
  - INTESTINAL OBSTRUCTION [None]
  - VITAMIN D DECREASED [None]
